FAERS Safety Report 7951859-2 (Version None)
Quarter: 2011Q4

REPORT INFORMATION
  Report Type: 
  Country: None (occurrence: None)
  Receive Date: 20111201
  Receipt Date: 20111116
  Transmission Date: 20120403
  Serious: Yes (Hospitalization)
  Sender: FDA-Public Use
  Company Number: TR-WATSON-2011-19876

PATIENT
  Age: 5 Year
  Sex: Male

DRUGS (4)
  1. RISPERIDONE [Suspect]
     Indication: AUTISM
     Dosage: 0.05 MG, DAILY
  2. METHYLPHENIDATE HCL [Suspect]
     Indication: AUTISM
     Dosage: UNK
  3. HALOPERIDOL [Suspect]
     Indication: AUTISM
     Dosage: UNK
  4. RISPERIDONE [Suspect]
     Dosage: 0.25 MG, DAILY

REACTIONS (3)
  - AGITATION [None]
  - LIVER FUNCTION TEST ABNORMAL [None]
  - DRUG INEFFECTIVE [None]
